FAERS Safety Report 8003224-X (Version None)
Quarter: 2011Q4

REPORT INFORMATION
  Report Type: 
  Country: None (occurrence: None)
  Receive Date: 20111222
  Receipt Date: 20111216
  Transmission Date: 20120403
  Serious: Yes (Other)
  Sender: FDA-Public Use
  Company Number: PHHO2011US020646

PATIENT
  Age: 67 Year
  Sex: Female
  Weight: 94.2 kg

DRUGS (2)
  1. AFINITOR [Suspect]
     Indication: NEOPLASM
     Dosage: 40 UNK, UNK
     Dates: start: 20090320, end: 20090508
  2. TYKERB [Suspect]
     Indication: NEOPLASM
     Dosage: UNK
     Dates: start: 20090320, end: 20090508

REACTIONS (4)
  - NEOPLASM PROGRESSION [None]
  - NEOPLASM MALIGNANT [None]
  - URINARY TRACT INFECTION [None]
  - HYPERGLYCAEMIA [None]
